FAERS Safety Report 7794203-6 (Version None)
Quarter: 2011Q4

REPORT INFORMATION
  Report Type: 
  Country: None (occurrence: None)
  Receive Date: 20111004
  Receipt Date: 20110923
  Transmission Date: 20120403
  Serious: Yes (Hospitalization)
  Sender: FDA-Public Use
  Company Number: US-BAYER-2011-091329

PATIENT
  Age: 23 Year
  Sex: Female
  Weight: 77.098 kg

DRUGS (2)
  1. YAZ [Suspect]
     Indication: ACNE
     Dosage: UNK
     Dates: start: 20080101, end: 20090101
  2. PHENTERMINE [Concomitant]
     Dosage: UNK
     Dates: start: 20080601, end: 20080901

REACTIONS (1)
  - CHOLECYSTECTOMY [None]
